FAERS Safety Report 7941730-4 (Version None)
Quarter: 2011Q4

REPORT INFORMATION
  Report Type: 
  Country: None (occurrence: None)
  Receive Date: 20111128
  Receipt Date: 20110929
  Transmission Date: 20120403
  Serious: No
  Sender: FDA-Public Use
  Company Number: US-BAYER-2011-094395

PATIENT
  Sex: Male
  Weight: 88 kg

DRUGS (5)
  1. LOVASTATIN [Concomitant]
  2. ASPIRIN [Concomitant]
  3. ALEVE (CAPLET) [Suspect]
     Indication: PAIN
     Dosage: 1 DF, UNK
     Route: 048
     Dates: start: 20110923
  4. GLUCOSAMINE [Concomitant]
  5. MULTI-VITAMIN [Concomitant]

REACTIONS (1)
  - PAIN [None]
